FAERS Safety Report 10201433 (Version 1)
Quarter: 2014Q2

REPORT INFORMATION
  Report Type: Spontaneous
  Country: PT (occurrence: PT)
  Receive Date: 20140528
  Receipt Date: 20140528
  Transmission Date: 20141212
  Serious: Yes (Other)
  Sender: FDA-Public Use
  Company Number: PT-009507513-1405PRT012723

PATIENT
  Sex: Female

DRUGS (2)
  1. ISENTRESS [Suspect]
     Dosage: UNK
     Route: 048
     Dates: start: 2012, end: 201402
  2. TRUVADA [Suspect]
     Dosage: UNK
     Route: 048
     Dates: start: 2012, end: 201402

REACTIONS (2)
  - Thyroid function test abnormal [Recovering/Resolving]
  - Blood thyroid stimulating hormone increased [Recovered/Resolved]
